FAERS Safety Report 12162928 (Version 1)
Quarter: 2016Q1

REPORT INFORMATION
  Report Type: Spontaneous
  Country: US (occurrence: None)
  Receive Date: 20160308
  Receipt Date: 20160308
  Transmission Date: 20160526
  Serious: No
  Sender: FDA-Public Use
  Company Number: None

PATIENT

DRUGS (1)
  1. DERMAREST PSORIASIS MEDICATED SKIN TREATMENT [Suspect]
     Active Substance: SALICYLIC ACID
     Indication: PSORIASIS
     Dosage: APPLIED TO A SURFACE, USUALLY THE SKIN
     Dates: start: 20160303, end: 20160306

REACTIONS (4)
  - Pain [None]
  - Herpes zoster [None]
  - Scar [None]
  - Rash erythematous [None]

NARRATIVE: CASE EVENT DATE: 20160306
